FAERS Safety Report 6240544-3 (Version None)
Quarter: 2009Q2

REPORT INFORMATION
  Report Type: 
  Country: None (occurrence: None)
  Receive Date: 20090623
  Receipt Date: 20080908
  Transmission Date: 20091009
  Serious: No
  Sender: FDA-Public Use
  Company Number: US-ASTRAZENECA-2008UW18541

PATIENT
  Age: 4 Year
  Sex: Male

DRUGS (3)
  1. PULMICORT RESPULES [Suspect]
     Dosage: TWICE A DAY
     Route: 055
     Dates: start: 20080908
  2. ALBUTEROL [Concomitant]
  3. PREDNISONE TAB [Concomitant]

REACTIONS (2)
  - ABNORMAL BEHAVIOUR [None]
  - PSYCHOMOTOR HYPERACTIVITY [None]
